FAERS Safety Report 8447138-X (Version None)
Quarter: 2012Q2

REPORT INFORMATION
  Report Type: 
  Country: None (occurrence: None)
  Receive Date: 20120619
  Receipt Date: 20110707
  Transmission Date: 20120825
  Serious: No
  Sender: FDA-Public Use
  Company Number: US-PFIZER INC-K201100820

PATIENT
  Sex: Female
  Weight: 56.689 kg

DRUGS (5)
  1. LEVOXYL [Suspect]
     Indication: HYPOTHYROIDISM
     Dosage: 100 MCG, QD M-F
     Route: 048
     Dates: end: 20110101
  2. LEVOXYL [Suspect]
     Dosage: 75 MCG, QD, S-S
     Route: 048
  3. MULTI-VITAMIN [Concomitant]
     Dosage: UNK
     Route: 048
  4. CALCIUM +D [Concomitant]
     Dosage: UNK
     Route: 048
  5. ACETAMINOPHEN [Concomitant]

REACTIONS (1)
  - DRUG INEFFECTIVE [None]
